FAERS Safety Report 15003768 (Version 1)
Quarter: 2018Q2

REPORT INFORMATION
  Report Type: Report from Study
  Country: US (occurrence: US)
  Receive Date: 20180613
  Receipt Date: 20180613
  Transmission Date: 20180711
  Serious: Yes (Death)
  Sender: FDA-Public Use
  Company Number: US-ASTRAZENECA-2018SE46210

PATIENT
  Age: 30927 Day
  Sex: Female
  Weight: 55 kg

DRUGS (2)
  1. TAGRISSO [Suspect]
     Active Substance: OSIMERTINIB
     Indication: LUNG NEOPLASM MALIGNANT
     Route: 048
     Dates: start: 20180322
  2. PREDNISONE. [Concomitant]
     Active Substance: PREDNISONE

REACTIONS (3)
  - Feeling jittery [Not Recovered/Not Resolved]
  - Pneumonitis [Fatal]
  - Pain [Unknown]

NARRATIVE: CASE EVENT DATE: 20180410
